FAERS Safety Report 4719456-X (Version None)
Quarter: 2005Q3

REPORT INFORMATION
  Report Type: 
  Country: None (occurrence: None)
  Receive Date: 20050719
  Receipt Date: 20050708
  Transmission Date: 20060218
  Serious: Yes (Hospitalization)
  Sender: FDA-Public Use
  Company Number: 200510477BFR

PATIENT
  Age: 80 Year
  Sex: Male
  Weight: 76 kg

DRUGS (6)
  1. CIPROFLOXACIN [Suspect]
     Indication: PROPHYLAXIS
     Dosage: ORAL
     Route: 048
     Dates: start: 20050517, end: 20050524
  2. PREVISCAN (FLUINDIONE) [Suspect]
     Indication: PULMONARY EMBOLISM
     Dosage: 20 MG, ORAL
     Route: 048
     Dates: start: 20040801, end: 20050524
  3. EFFERALGAN CODEINE [Concomitant]
  4. FORADIL [Concomitant]
  5. SOLU-MEDROL [Concomitant]
  6. CLONAZEPAM [Concomitant]

REACTIONS (22)
  - ALANINE AMINOTRANSFERASE INCREASED [None]
  - ASPARTATE AMINOTRANSFERASE INCREASED [None]
  - BLOOD ALKALINE PHOSPHATASE INCREASED [None]
  - BLOOD FIBRINOGEN INCREASED [None]
  - COMA [None]
  - DRUG INTERACTION [None]
  - DYSPNOEA [None]
  - FALL [None]
  - FATIGUE [None]
  - GAMMA-GLUTAMYLTRANSFERASE INCREASED [None]
  - HEPATOMEGALY [None]
  - INTERNATIONAL NORMALISED RATIO INCREASED [None]
  - JAUNDICE [None]
  - LIPASE INCREASED [None]
  - MUSCULAR WEAKNESS [None]
  - OEDEMA PERIPHERAL [None]
  - OVERDOSE [None]
  - PROTHROMBIN TIME SHORTENED [None]
  - PYREXIA [None]
  - RALES [None]
  - RESPIRATORY TRACT CONGESTION [None]
  - RHONCHI [None]
